FAERS Safety Report 7456470-8 (Version None)
Quarter: 2011Q2

REPORT INFORMATION
  Report Type: 
  Country: None (occurrence: None)
  Receive Date: 20110503
  Receipt Date: 20110426
  Transmission Date: 20111010
  Serious: Yes (Hospitalization)
  Sender: FDA-Public Use
  Company Number: SE-NAPPMUNDI-GBR-2011-0008125

PATIENT
  Sex: Male

DRUGS (16)
  1. OXYNORM 20 MG KAPSEL, HARD [Suspect]
     Indication: PAIN
     Dosage: 3 TO 6 CAPSULES OF 20 MG, DAILY
     Route: 048
  2. OMEPRAZOLE [Concomitant]
     Route: 065
  3. DULCOLAX [Concomitant]
     Route: 065
  4. SAROTEN [Concomitant]
     Route: 048
  5. ALENAT [Concomitant]
     Dosage: 10 MG, UNK
     Route: 048
  6. DURAGESIC-100 [Concomitant]
     Route: 062
  7. DIKLOFENAK [Concomitant]
     Route: 065
  8. IMPUGAN [Concomitant]
     Route: 048
  9. METOPROLOL SUCCINATE [Concomitant]
     Route: 065
  10. XANOR [Concomitant]
     Route: 048
  11. FOLACIN                            /00198401/ [Concomitant]
     Dosage: 5 MG, UNK
     Route: 048
  12. BEHEPAN [Concomitant]
     Route: 048
  13. ACETAMINOPHEN [Concomitant]
     Route: 048
  14. TEGRETOL [Concomitant]
     Route: 048
  15. SIMVASTATIN [Concomitant]
     Route: 065
  16. KALCIPOS [Concomitant]
     Route: 048

REACTIONS (3)
  - DEPRESSION [None]
  - APHASIA [None]
  - SOMNOLENCE [None]
